FAERS Safety Report 26133572 (Version 1)
Quarter: 2025Q4

REPORT INFORMATION
  Report Type: Spontaneous
  Country: CN (occurrence: CN)
  Receive Date: 20251209
  Receipt Date: 20251209
  Transmission Date: 20260118
  Serious: Yes (Other)
  Sender: ALKEM
  Company Number: CN-ALKEM LABORATORIES LIMITED-CN-ALKEM-2025-11162

PATIENT
  Age: 49 Day
  Weight: 4.36 kg

DRUGS (1)
  1. VANCOMYCIN [Suspect]
     Active Substance: VANCOMYCIN
     Indication: Anti-infective therapy
     Dosage: 50 MILLIGRAM, QID (45.87 MG/KG/DAY)
     Route: 042

REACTIONS (2)
  - Vancomycin infusion reaction [Unknown]
  - Off label use [Unknown]
